FAERS Safety Report 14674639 (Version 2)
Quarter: 2018Q2

REPORT INFORMATION
  Report Type: Spontaneous
  Country: IT (occurrence: IT)
  Receive Date: 20180323
  Receipt Date: 20180608
  Transmission Date: 20180711
  Serious: Yes (Other)
  Sender: FDA-Public Use
  Company Number: IT-AUROBINDO-AUR-APL-2018-015872

PATIENT
  Age: 62 Year
  Sex: Male

DRUGS (4)
  1. VALSARTAN FILM-COATED TABLET [Suspect]
     Active Substance: VALSARTAN
     Indication: DRUG ABUSE
     Dosage: 400 MILLIGRAM, TOTAL
     Route: 048
     Dates: start: 20180206, end: 20180206
  2. TRIATEC                            /00116401/ [Suspect]
     Active Substance: ACETAMINOPHEN\CODEINE PHOSPHATE
     Indication: DRUG ABUSE
     Dosage: 4 DOSAGE FORM, TOTAL
     Route: 048
     Dates: start: 20180206, end: 20180206
  3. ACTIGRIP [Suspect]
     Active Substance: ACETAMINOPHEN\PSEUDOEPHEDRINE HYDROCHLORIDE\TRIPROLIDINE HYDROCHLORIDE
     Indication: DRUG ABUSE
     Dosage: 3 DOSAGE FORM, TOTAL
     Route: 048
     Dates: start: 20180206, end: 20180206
  4. TACHIPIRINA [Suspect]
     Active Substance: ACETAMINOPHEN
     Indication: DRUG ABUSE
     Dosage: 4 DOSAGE FORM, TOTAL
     Route: 048
     Dates: start: 20180206, end: 20180206

REACTIONS (2)
  - Sopor [Unknown]
  - Drug abuse [Unknown]

NARRATIVE: CASE EVENT DATE: 20180206
